FAERS Safety Report 5274072-9 (Version None)
Quarter: 2007Q1

REPORT INFORMATION
  Report Type: 
  Country: None (occurrence: None)
  Receive Date: 20070323
  Receipt Date: 20070315
  Transmission Date: 20070707
  Serious: Yes (Life-Threatening, Hospitalization, Disabling)
  Sender: FDA-Public Use
  Company Number: JP-MERCK-0702USA04481

PATIENT
  Age: 78 Year
  Sex: Female

DRUGS (9)
  1. FOSAMAX [Suspect]
     Indication: OSTEOPOROSIS
     Route: 048
     Dates: start: 20021015, end: 20060429
  2. FOSAMAX [Suspect]
     Indication: PROPHYLAXIS
     Route: 048
     Dates: start: 20021015, end: 20060429
  3. MERISLON [Concomitant]
     Indication: DIZZINESS
     Route: 048
  4. CALFINA [Concomitant]
     Indication: OSTEOPOROSIS
     Route: 048
     Dates: start: 20020928, end: 20060429
  5. CIBENOL [Concomitant]
     Indication: ARRHYTHMIA
     Route: 048
  6. LOCHOL [Concomitant]
     Indication: HYPERCHOLESTEROLAEMIA
     Route: 048
     Dates: start: 20000101
  7. GOKUMISIN [Concomitant]
     Indication: LIVER DISORDER
     Route: 048
     Dates: start: 20000101
  8. OSPAIN [Concomitant]
     Route: 048
     Dates: start: 20051025, end: 20051029
  9. GASTROM [Concomitant]
     Route: 048
     Dates: start: 20051025, end: 20051029

REACTIONS (2)
  - DUODENAL ULCER PERFORATION [None]
  - GASTRIC ULCER PERFORATION [None]
